FAERS Safety Report 13407247 (Version 8)
Quarter: 2017Q3

REPORT INFORMATION
  Report Type: Spontaneous
  Country: US (occurrence: US)
  Receive Date: 20170405
  Receipt Date: 20170912
  Transmission Date: 20171127
  Serious: Yes (Hospitalization)
  Sender: FDA-Public Use
  Company Number: US-ACTELION-A-US2017-151987

PATIENT
  Age: 30 Year
  Sex: Male
  Weight: 113.38 kg

DRUGS (4)
  1. ADEMPAS [Concomitant]
     Active Substance: RIOCIGUAT
  2. OPSUMIT [Suspect]
     Active Substance: MACITENTAN
     Indication: PULMONARY ARTERIAL HYPERTENSION
     Dosage: 10 MG, QD
     Route: 048
  3. TYVASO [Concomitant]
     Active Substance: TREPROSTINIL
  4. ADCIRCA [Concomitant]
     Active Substance: TADALAFIL

REACTIONS (10)
  - Malaise [Unknown]
  - Headache [Unknown]
  - Swelling [Unknown]
  - Skin discolouration [Unknown]
  - Treatment noncompliance [Unknown]
  - Right ventricular failure [Unknown]
  - Oedema peripheral [Unknown]
  - Peripheral swelling [Unknown]
  - Fluid overload [Unknown]
  - Dyspnoea exertional [Unknown]
